FAERS Safety Report 6166723-1 (Version None)
Quarter: 2009Q2

REPORT INFORMATION
  Report Type: 
  Country: None (occurrence: None)
  Receive Date: 20090424
  Receipt Date: 20090417
  Transmission Date: 20091009
  Serious: Yes (Hospitalization)
  Sender: FDA-Public Use
  Company Number: AT-PFIZER INC-2009180867

PATIENT

DRUGS (13)
  1. HALCION [Suspect]
     Route: 048
  2. ATACAND HCT [Suspect]
     Indication: CARDIAC FAILURE
     Route: 048
  3. DANCOR [Concomitant]
     Route: 048
  4. FOSICOMB [Concomitant]
     Route: 048
  5. LASIX [Concomitant]
     Route: 048
  6. MIRTAZAPINE [Concomitant]
     Route: 048
  7. NEURONTIN [Concomitant]
     Route: 048
  8. NEBIVOLOL HYDROCHLORIDE [Concomitant]
     Route: 048
  9. PANTOPRAZOLE [Concomitant]
     Route: 048
  10. SINTROM [Concomitant]
     Route: 048
  11. THYREX [Concomitant]
     Route: 048
  12. TRAMABENE [Concomitant]
     Route: 048
  13. SIMVASTATIN [Concomitant]
     Route: 048

REACTIONS (3)
  - FALL [None]
  - HYPOTENSION [None]
  - VERTIGO [None]
